FAERS Safety Report 9926675 (Version 1)
Quarter: 2014Q1

REPORT INFORMATION
  Report Type: Spontaneous
  Country: US (occurrence: US)
  Receive Date: 20140226
  Receipt Date: 20140226
  Transmission Date: 20141002
  Serious: No
  Sender: FDA-Public Use
  Company Number: US-AMGEN-USASP2013077193

PATIENT
  Age: 62 Year
  Sex: Female

DRUGS (8)
  1. ENBREL [Suspect]
     Indication: PRODUCT USED FOR UNKNOWN INDICATION
     Dosage: 50 MG, QWK
     Route: 058
     Dates: start: 2009
  2. NOVOLOG [Concomitant]
     Dosage: UNK
  3. LANTUS [Concomitant]
     Dosage: UNK
  4. ARAVA [Concomitant]
     Dosage: 10 MG, UNK
  5. NEXIUM                             /01479302/ [Concomitant]
     Dosage: 20 MG, UNK
  6. VITAMIN D                          /00107901/ [Concomitant]
     Dosage: 1000 IU, UNK
  7. CALCIUM D-500 [Concomitant]
     Dosage: UNK
  8. MULTIVITAMIN                       /07504101/ [Concomitant]
     Dosage: UNK

REACTIONS (1)
  - Rheumatoid arthritis [Unknown]
